FAERS Safety Report 5654926-1 (Version None)
Quarter: 2008Q1

REPORT INFORMATION
  Report Type: 
  Country: None (occurrence: None)
  Receive Date: 20080307
  Receipt Date: 20070911
  Transmission Date: 20080703
  Serious: No
  Sender: FDA-Public Use
  Company Number: A0680910A

PATIENT
  Age: 57 Year
  Sex: Female

DRUGS (9)
  1. REQUIP [Suspect]
     Indication: RESTLESS LEGS SYNDROME
     Route: 048
     Dates: start: 20060901
  2. THYROID TAB [Concomitant]
  3. UNKNOWN MEDICATION [Concomitant]
     Indication: ENDOCRINE DISORDER
  4. ALLERGY MEDICATION [Concomitant]
  5. ZOLOFT [Concomitant]
  6. NAPROXEN [Concomitant]
  7. ASPIRIN [Concomitant]
  8. PROTONIX [Concomitant]
  9. BLOOD PRESSURE MEDICATION [Concomitant]

REACTIONS (6)
  - DRUG INEFFECTIVE [None]
  - FATIGUE [None]
  - MALAISE [None]
  - NAUSEA [None]
  - SOMNOLENCE [None]
  - VOMITING [None]
